FAERS Safety Report 5958942-1 (Version None)
Quarter: 2008Q4

REPORT INFORMATION
  Report Type: 
  Country: None (occurrence: None)
  Receive Date: 20081114
  Receipt Date: 20081104
  Transmission Date: 20090506
  Serious: Yes (Hospitalization)
  Sender: FDA-Public Use
  Company Number: AEUSA200800269

PATIENT
  Sex: Female

DRUGS (4)
  1. GAMUNEX [Suspect]
     Indication: HYPOGAMMAGLOBULINAEMIA
     Dosage: IV
     Route: 042
     Dates: start: 20080917
  2. GAMUNEX [Suspect]
     Indication: IMMUNODEFICIENCY COMMON VARIABLE
     Dosage: IV
     Route: 042
     Dates: start: 20080917
  3. .. [Concomitant]
  4. .. [Concomitant]

REACTIONS (2)
  - BLOOD CULTURE POSITIVE [None]
  - BORDETELLA INFECTION [None]
